FAERS Safety Report 18393081 (Version 4)
Quarter: 2021Q4

REPORT INFORMATION
  Report Type: Spontaneous
  Country: AU (occurrence: AU)
  Receive Date: 20201016
  Receipt Date: 20211020
  Transmission Date: 20220304
  Serious: Yes (Life-Threatening, Other)
  Sender: FDA-Public Use
  Company Number: AU-MLMSERVICE-20201006-2515818-1

PATIENT
  Age: 38 Year
  Sex: Male

DRUGS (4)
  1. ROCURONIUM BROMIDE [Suspect]
     Active Substance: ROCURONIUM BROMIDE
     Indication: Induction of anaesthesia
     Dosage: UNK (FULL DOSE)
     Dates: start: 201710
  2. KETAMINE HYDROCHLORIDE [Suspect]
     Active Substance: KETAMINE HYDROCHLORIDE
     Indication: Induction of anaesthesia
     Dosage: UNK
     Dates: start: 201710
  3. FENTANYL CITRATE [Suspect]
     Active Substance: FENTANYL CITRATE
     Indication: Induction of anaesthesia
     Dosage: UNK (LOW DOSE)
     Dates: start: 201710
  4. SODIUM LACTATE [Concomitant]
     Active Substance: SODIUM LACTATE
     Indication: Resuscitation
     Dosage: UNK (61 OVER 24 H)

REACTIONS (4)
  - Bradycardia [Recovered/Resolved]
  - Pulseless electrical activity [Recovered/Resolved]
  - Sympatholysis [Recovered/Resolved]
  - Autonomic nervous system imbalance [Recovered/Resolved]

NARRATIVE: CASE EVENT DATE: 20171001
